FAERS Safety Report 6371622-6 (Version None)
Quarter: 2009Q3

REPORT INFORMATION
  Report Type: 
  Country: None (occurrence: None)
  Receive Date: 20090923
  Receipt Date: 20080307
  Transmission Date: 20100115
  Serious: Yes (Other)
  Sender: FDA-Public Use
  Company Number: US-ASTRAZENECA-2007UW28982

PATIENT
  Age: 13482 Day
  Sex: Female
  Weight: 81.4 kg

DRUGS (20)
  1. SEROQUEL [Suspect]
     Indication: MANIA
     Dosage: 50 MG - 400 MG
     Route: 048
     Dates: start: 20060123
  2. SEROQUEL [Suspect]
     Indication: SLEEP DISORDER
     Dosage: 50 MG - 400 MG
     Route: 048
     Dates: start: 20060123
  3. SEROQUEL [Suspect]
     Route: 048
     Dates: start: 20060518, end: 20070501
  4. SEROQUEL [Suspect]
     Route: 048
     Dates: start: 20060518, end: 20070501
  5. SEROQUEL [Suspect]
     Route: 048
     Dates: start: 20060518, end: 20070501
  6. SEROQUEL [Suspect]
     Route: 048
     Dates: start: 20060518, end: 20070501
  7. WELLBUTRIN [Concomitant]
     Dates: start: 20030214, end: 20040727
  8. PAXIL [Concomitant]
     Dates: start: 20040409, end: 20041022
  9. PAXIL [Concomitant]
  10. FASTIN [Concomitant]
     Dates: start: 20040601
  11. METFORMIN HCL [Concomitant]
     Route: 048
  12. DIOVAN [Concomitant]
     Dosage: 80 MG  - 160 MG
  13. ZANTAC [Concomitant]
  14. DEXAMETHASONE [Concomitant]
  15. PREDNISONE [Concomitant]
  16. OXYCODONE [Concomitant]
  17. PROMETHAZINE [Concomitant]
  18. HYDROCHLOROTHIAZIDE [Concomitant]
  19. LISINOPRIL [Concomitant]
  20. FLUOXETINE [Concomitant]

REACTIONS (21)
  - ABDOMINAL PAIN [None]
  - ARTHROPOD BITE [None]
  - BIPOLAR DISORDER [None]
  - BLOOD GLUCOSE INCREASED [None]
  - BRONCHITIS [None]
  - DEPRESSION [None]
  - DIABETES MELLITUS [None]
  - DIZZINESS [None]
  - DYSPHONIA [None]
  - FLUSHING [None]
  - GASTROENTERITIS [None]
  - HYPOAESTHESIA [None]
  - MUSCULOSKELETAL PAIN [None]
  - NECK PAIN [None]
  - OEDEMA PERIPHERAL [None]
  - PAIN IN EXTREMITY [None]
  - RHINITIS ALLERGIC [None]
  - SINUSITIS [None]
  - SUICIDE ATTEMPT [None]
  - THERMAL BURN [None]
  - VAGINITIS BACTERIAL [None]
